FAERS Safety Report 19839833 (Version 1)
Quarter: 2021Q3

REPORT INFORMATION
  Report Type: Spontaneous
  Country: SE (occurrence: SE)
  Receive Date: 20210916
  Receipt Date: 20210916
  Transmission Date: 20211014
  Serious: Yes (Disabling)
  Sender: FDA-Public Use
  Company Number: NVSC2021SE207600

PATIENT
  Age: 42 Year
  Sex: Male
  Weight: 94 kg

DRUGS (1)
  1. AMLODIPIN SANDOZ (AMLODIPINE BESILATE) [Suspect]
     Active Substance: AMLODIPINE BESYLATE
     Indication: HYPERTENSION
     Dosage: 5 MG, QD (1 GANG/DAG)
     Route: 048
     Dates: start: 20170201, end: 20210531

REACTIONS (12)
  - Constipation [Recovered/Resolved with Sequelae]
  - Feeling abnormal [Recovering/Resolving]
  - Paraesthesia [Recovered/Resolved]
  - Nausea [Recovered/Resolved with Sequelae]
  - Arthralgia [Recovering/Resolving]
  - Pain in extremity [Recovering/Resolving]
  - Muscle spasms [Recovered/Resolved]
  - Hypoaesthesia [Recovered/Resolved]
  - Hepatic pain [Recovering/Resolving]
  - Vision blurred [Recovering/Resolving]
  - Vomiting [Recovered/Resolved with Sequelae]
  - Diarrhoea [Unknown]

NARRATIVE: CASE EVENT DATE: 20170220
